FAERS Safety Report 9849911 (Version 1)
Quarter: 2014Q1

REPORT INFORMATION
  Report Type: Spontaneous
  Country: BR (occurrence: BR)
  Receive Date: 20140128
  Receipt Date: 20140128
  Transmission Date: 20141002
  Serious: Yes (Other)
  Sender: FDA-Public Use
  Company Number: BR-ELI_LILLY_AND_COMPANY-BR201401006026

PATIENT
  Age: 49 Year
  Sex: Male

DRUGS (1)
  1. HUMULIN R [Suspect]
     Indication: PRODUCT USED FOR UNKNOWN INDICATION
     Dosage: 20 ML, SINGLE
     Route: 065

REACTIONS (4)
  - Suicide attempt [Unknown]
  - Dizziness [Unknown]
  - Asthenia [Unknown]
  - Intentional overdose [Unknown]
